FAERS Safety Report 5894887-3 (Version None)
Quarter: 2008Q3

REPORT INFORMATION
  Report Type: 
  Country: None (occurrence: None)
  Receive Date: 20080924
  Receipt Date: 20080912
  Transmission Date: 20090109
  Serious: Yes (Other)
  Sender: FDA-Public Use
  Company Number: PHHY2008FR21678

PATIENT
  Age: 64 Year
  Sex: Female

DRUGS (6)
  1. SANDOSTATIN [Suspect]
     Indication: PITUITARY TUMOUR BENIGN
     Dosage: 10 MG, QMO
  2. SANDOSTATIN [Suspect]
     Indication: ACROMEGALY
     Dosage: 20 MG, QMO
     Dates: start: 20080301
  3. LEVOTHYROX [Concomitant]
     Dosage: UNK
  4. HYPERIUM [Concomitant]
     Indication: HYPERTENSION
     Dosage: 2 TABLETS/ DAY
  5. VALSARTAN AND HYDROCHLOROTHIAZIDE [Concomitant]
     Indication: HYPERTENSION
     Dosage: 2 TAB/ DAY
  6. KERLONE [Concomitant]
     Indication: HYPERTENSION
     Dosage: 0.5 TAB/ DAY

REACTIONS (11)
  - ALOPECIA [None]
  - BLOOD PRESSURE INCREASED [None]
  - DIARRHOEA [None]
  - FLATULENCE [None]
  - GASTROENTERITIS [None]
  - INCREASED APPETITE [None]
  - INCREASED UPPER AIRWAY SECRETION [None]
  - INSOMNIA [None]
  - NAUSEA [None]
  - PAIN [None]
  - WEIGHT INCREASED [None]
